FAERS Safety Report 20642597 (Version 3)
Quarter: 2024Q4

REPORT INFORMATION
  Report Type: Spontaneous
  Country: ES (occurrence: ES)
  Receive Date: 20220328
  Receipt Date: 20241106
  Transmission Date: 20250115
  Serious: Yes (Other)
  Sender: AUROBINDO
  Company Number: ES-MLMSERVICE-20220309-3416858-1

PATIENT
  Age: 69 Year
  Sex: Male
  Weight: 100.8 kg

DRUGS (6)
  1. FLECAINIDE [Suspect]
     Active Substance: FLECAINIDE
     Indication: Atrial fibrillation
     Dosage: 100 MILLIGRAM, TWO TIMES A DAY
     Route: 065
     Dates: end: 202104
  2. FLECAINIDE [Suspect]
     Active Substance: FLECAINIDE
     Dosage: 50 MILLIGRAM, TWO TIMES A DAY ( IN THE LAST TWO YEARS)
     Route: 065
  3. ASPIRIN ALUMINUM [Concomitant]
     Active Substance: ASPIRIN ALUMINUM
     Indication: Product used for unknown indication
     Dosage: UNK
     Route: 065
  4. OLMESARTAN [Concomitant]
     Active Substance: OLMESARTAN
     Indication: Hypertension
     Dosage: UNK
     Route: 065
  5. SIMVASTATIN [Concomitant]
     Active Substance: SIMVASTATIN
     Indication: Product used for unknown indication
     Dosage: UNK
     Route: 065
  6. SILODOSIN [Concomitant]
     Active Substance: SILODOSIN
     Indication: Product used for unknown indication
     Dosage: UNK
     Route: 065

REACTIONS (10)
  - Dizziness [Recovered/Resolved]
  - Deafness neurosensory [Recovered/Resolved]
  - Gait disturbance [Recovered/Resolved]
  - Nausea [Recovered/Resolved]
  - Oscillopsia [Recovering/Resolving]
  - Toxicity to various agents [Recovered/Resolved]
  - Vomiting [Recovered/Resolved]
  - Vestibular disorder [Unknown]
  - Ototoxicity [Recovering/Resolving]
  - Balance disorder [Unknown]

NARRATIVE: CASE EVENT DATE: 20210201
